FAERS Safety Report 4492237-0 (Version None)
Quarter: 2004Q4

REPORT INFORMATION
  Report Type: 
  Country: None (occurrence: None)
  Receive Date: 20041103
  Receipt Date: 20041025
  Transmission Date: 20050328
  Serious: Yes (Other)
  Sender: FDA-Public Use
  Company Number: GB-MERCK-0410GBR00294

PATIENT
  Age: 67 Year
  Sex: Male

DRUGS (5)
  1. VIOXX [Suspect]
     Indication: SPONDYLITIS
     Route: 048
     Dates: start: 20031222, end: 20031229
  2. VIOXX [Suspect]
     Indication: TRIGEMINAL NEURALGIA
     Route: 048
     Dates: start: 20031222, end: 20031229
  3. AMITRIPTYLINE HYDROCHLORIDE [Concomitant]
     Indication: PAIN
     Route: 065
  4. DIHYDROCODEINE BITARTRATE [Concomitant]
     Indication: PAIN
     Route: 065
  5. LANSOPRAZOLE [Concomitant]
     Indication: ABDOMINAL PAIN UPPER
     Route: 065

REACTIONS (3)
  - ABDOMINAL PAIN UPPER [None]
  - FORMICATION [None]
  - PRURITUS [None]
